FAERS Safety Report 5422080-7 (Version None)
Quarter: 2007Q3

REPORT INFORMATION
  Report Type: 
  Country: None (occurrence: None)
  Receive Date: 20070822
  Receipt Date: 20070816
  Transmission Date: 20080115
  Serious: Yes (Hospitalization, Other)
  Sender: FDA-Public Use
  Company Number: AU-BRISTOL-MYERS SQUIBB COMPANY-13879333

PATIENT
  Age: 55 Year
  Sex: Male

DRUGS (9)
  1. ENTECAVIR [Suspect]
     Indication: HEPATITIS B
     Route: 048
     Dates: start: 20040319
  2. LAMIVUDINE [Suspect]
     Indication: HEPATITIS B
     Route: 048
     Dates: start: 20020423, end: 20040318
  3. NORVASC [Concomitant]
     Dates: start: 20060710
  4. CANDESARTAN CILEXETIL [Concomitant]
     Dates: start: 20020901
  5. SIMVASTATIN [Concomitant]
     Dates: start: 20030101
  6. METFORMIN HCL [Concomitant]
     Dates: start: 20050317
  7. ASPIRIN [Concomitant]
     Dates: start: 20020901
  8. ESOMEPRAZOLE MAGNESIUM [Concomitant]
     Dates: start: 20040101
  9. DENCORUB [Concomitant]
     Dates: start: 20060505

REACTIONS (2)
  - ABDOMINAL PAIN UPPER [None]
  - VOMITING [None]
